FAERS Safety Report 4592661-1 (Version None)
Quarter: 2005Q1

REPORT INFORMATION
  Report Type: 
  Country: None (occurrence: None)
  Receive Date: 20050218
  Receipt Date: 20050207
  Transmission Date: 20050727
  Serious: Yes (Hospitalization)
  Sender: FDA-Public Use
  Company Number: 2005CG00286

PATIENT
  Age: 45 Year
  Sex: Female

DRUGS (13)
  1. OMEPRAZOLE [Suspect]
     Dosage: 20 MG QD PO
     Route: 048
     Dates: start: 20050106
  2. NOROXIN [Suspect]
     Dosage: 400 MG BID PO
     Route: 048
     Dates: start: 20050101
  3. PLAVIX [Suspect]
     Dates: start: 20050107
  4. COVERSYL /FRA/ [Suspect]
     Dosage: 4 MG QD PO
     Route: 048
     Dates: start: 20050103
  5. LASILIX [Suspect]
     Dates: start: 20050103
  6. XENETIX [Suspect]
     Dates: start: 20050107, end: 20050107
  7. DOBUTREX [Suspect]
  8. TEMESTA [Suspect]
  9. KALEORID [Suspect]
  10. CORVASAL [Suspect]
  11. IMMOHEP [Suspect]
  12. ACTRAPID HUMAN [Concomitant]
  13. KARDEGIC /FRA/ [Suspect]

REACTIONS (1)
  - VASCULAR PURPURA [None]
